FAERS Safety Report 6725627-3 (Version None)
Quarter: 2010Q2

REPORT INFORMATION
  Report Type: 
  Country: None (occurrence: None)
  Receive Date: 20100513
  Receipt Date: 20100513
  Transmission Date: 20101027
  Serious: Yes (Death)
  Sender: FDA-Public Use
  Company Number: None

PATIENT
  Age: 25 Year
  Sex: Male
  Weight: 81.6475 kg

DRUGS (1)
  1. CORICIDIN [Suspect]
     Dates: start: 20080801, end: 20090202

REACTIONS (2)
  - DRUG ABUSE [None]
  - HOMICIDE [None]
